FAERS Safety Report 9929546 (Version 2)
Quarter: 2014Q1

REPORT INFORMATION
  Report Type: Spontaneous
  Country: US (occurrence: US)
  Receive Date: 20140227
  Receipt Date: 20140326
  Transmission Date: 20141002
  Serious: Yes (Hospitalization)
  Sender: FDA-Public Use
  Company Number: US-B.I. PHARMACEUTICALS,INC./RIDGEFIELD-2014-BI-08095BP

PATIENT
  Age: 60 Year
  Sex: Female
  Weight: 59 kg

DRUGS (4)
  1. MIRAPEX [Suspect]
     Indication: RESTLESS LEGS SYNDROME
     Dosage: 0.75 MG
     Route: 048
     Dates: start: 201308
  2. DEPAKOTE [Concomitant]
     Indication: CONVULSION
     Dosage: 2000 MG
     Route: 048
  3. ZONEGRAN [Concomitant]
     Indication: CONVULSION
     Dosage: 500 MG
     Route: 048
  4. KLONOPIN [Concomitant]
     Indication: CONVULSION
     Dosage: 2 MG
     Route: 048

REACTIONS (2)
  - Bronchitis [Recovered/Resolved]
  - Overdose [Not Recovered/Not Resolved]
